FAERS Safety Report 12686902 (Version 1)
Quarter: 2016Q3

REPORT INFORMATION
  Report Type: Spontaneous
  Country: US (occurrence: US)
  Receive Date: 20160825
  Receipt Date: 20160825
  Transmission Date: 20161109
  Serious: No
  Sender: FDA-Public Use
  Company Number: US-JAZZ-2016-US-006844

PATIENT
  Sex: Female

DRUGS (67)
  1. XYREM [Suspect]
     Active Substance: SODIUM OXYBATE
     Indication: CATAPLEXY
     Dosage: DOSE ADJUSTMENTS
     Route: 048
  2. ASCORBIC ACID. [Concomitant]
     Active Substance: ASCORBIC ACID
  3. DEXAMETHASONE. [Concomitant]
     Active Substance: DEXAMETHASONE
  4. EPIPEN JR [Concomitant]
     Active Substance: EPINEPHRINE
  5. ALLERGAN [Concomitant]
     Active Substance: PAPAIN
  6. LYRICA [Concomitant]
     Active Substance: PREGABALIN
  7. HYDROCORTISONE AC [Concomitant]
  8. BOSWELLIA SERRATA [Concomitant]
  9. 5-HTP [Concomitant]
     Active Substance: OXITRIPTAN
  10. NALTREXONE [Concomitant]
     Active Substance: NALTREXONE
  11. ACAI [Concomitant]
  12. GASTROCROM [Concomitant]
     Active Substance: CROMOLYN SODIUM
  13. ACIDOPHILIS [Concomitant]
     Active Substance: LACTOBACILLUS ACIDOPHILUS
  14. MAGNEBIND [Concomitant]
  15. CIMETIDINE [Concomitant]
     Active Substance: CIMETIDINE
  16. MIGRANAL [Concomitant]
     Active Substance: DIHYDROERGOTAMINE MESYLATE
  17. NADOLOL. [Concomitant]
     Active Substance: NADOLOL
  18. BIOTIN [Concomitant]
     Active Substance: BIOTIN
  19. GUAIFENESIN ER [Concomitant]
     Active Substance: GUAIFENESIN
  20. SUMATRIPTAN SUCCINATE. [Concomitant]
     Active Substance: SUMATRIPTAN SUCCINATE
  21. FISH OIL [Concomitant]
     Active Substance: FISH OIL
  22. AMITRIPTYLINE HCL [Concomitant]
     Active Substance: AMITRIPTYLINE
  23. THEANINE [Concomitant]
     Active Substance: THEANINE
  24. FEXOFENADINE HCL [Concomitant]
     Active Substance: FEXOFENADINE HYDROCHLORIDE
  25. FLAXSEED [Concomitant]
     Active Substance: FLAX SEED
  26. MILK THISTLE [Concomitant]
     Active Substance: MILK THISTLE
  27. PROBIOTIC [Concomitant]
     Active Substance: PROBIOTICS NOS
  28. LORATADINE. [Concomitant]
     Active Substance: LORATADINE
  29. DIGESTIVE ENZYMES [Concomitant]
     Active Substance: UNSPECIFIED INGREDIENT
  30. CETIRIZINE HCL [Concomitant]
     Active Substance: CETIRIZINE HYDROCHLORIDE
  31. CROMOLYN SODIUM. [Concomitant]
     Active Substance: CROMOLYN SODIUM
  32. FLONASE [Concomitant]
     Active Substance: FLUTICASONE PROPIONATE
  33. L-METHIONINE [Concomitant]
  34. MAGNESIUM GLUCONATE [Concomitant]
     Active Substance: MAGNESIUM GLUCONATE
  35. MOLYBDENUM [Concomitant]
     Active Substance: MOLYBDENUM
  36. QUERCETIN DIHYDRATE [Concomitant]
  37. RHODIOLA [Concomitant]
     Active Substance: HERBALS
  38. VITAMIN B12 [Concomitant]
     Active Substance: CYANOCOBALAMIN
  39. MINOCYCLINE [Concomitant]
     Active Substance: MINOCYCLINE\MINOCYCLINE HYDROCHLORIDE
  40. DIHYDROERGOTAMINE [Concomitant]
     Active Substance: DIHYDROERGOTAMINE
  41. METHYLCOBALAMIN. [Concomitant]
     Active Substance: METHYLCOBALAMIN
  42. ONDANSETRON ODT [Concomitant]
     Active Substance: ONDANSETRON
  43. AZITHROMYCIN ANHYDROUS. [Concomitant]
     Active Substance: AZITHROMYCIN ANHYDROUS
  44. CHLORZOXAZONE. [Concomitant]
     Active Substance: CHLORZOXAZONE
  45. COQ10 [Concomitant]
     Active Substance: UBIDECARENONE
  46. PROGESTERONE. [Concomitant]
     Active Substance: PROGESTERONE
  47. SALT [Concomitant]
     Active Substance: SODIUM CHLORIDE
  48. TAURINE [Concomitant]
     Active Substance: TAURINE
  49. VITAMIN B6 [Concomitant]
     Active Substance: PYRIDOXINE HYDROCHLORIDE
  50. GLUCOSAMINE SULFATE [Concomitant]
     Active Substance: GLUCOSAMINE SULFATE
  51. PHENYLALANINE (DL) [Concomitant]
  52. XYREM [Suspect]
     Active Substance: SODIUM OXYBATE
     Dosage: 4.5 G, BID
     Route: 048
     Dates: start: 201105
  53. VITAMIN D3 [Concomitant]
     Active Substance: CHOLECALCIFEROL
  54. YUCCA [Concomitant]
  55. GLUTATHIONE [Concomitant]
     Active Substance: GLUTATHIONE
  56. SLIPPERY ELM [Concomitant]
     Active Substance: ELM
  57. KETOCONAZOLE. [Concomitant]
     Active Substance: KETOCONAZOLE
  58. VERAPAMIL ER [Concomitant]
     Active Substance: VERAPAMIL HYDROCHLORIDE
  59. DILTIAZEM ER [Concomitant]
     Active Substance: DILTIAZEM
  60. TURMERIC [Concomitant]
     Active Substance: TURMERIC
  61. VIVELLE [Concomitant]
     Active Substance: ESTRADIOL
  62. XYREM [Suspect]
     Active Substance: SODIUM OXYBATE
     Indication: NARCOLEPSY
     Dosage: 2.25 G, BID
     Route: 048
     Dates: start: 201007, end: 201008
  63. ZYRTEC [Suspect]
     Active Substance: CETIRIZINE HYDROCHLORIDE
     Dosage: UNKNOWN DOSE
  64. ALPHA LIPOIC ACID [Concomitant]
     Active Substance: .ALPHA.-LIPOIC ACID
  65. CALCIUM CARBONATE. [Concomitant]
     Active Substance: CALCIUM CARBONATE
  66. CURCUMIN [Concomitant]
     Active Substance: CURCUMIN
  67. EXCEDRIN MIGRAINE [Concomitant]
     Active Substance: ACETAMINOPHEN\ASPIRIN\CAFFEINE

REACTIONS (5)
  - Abdominal discomfort [Unknown]
  - Fatigue [Unknown]
  - Post-traumatic stress disorder [Unknown]
  - Hypotension [Not Recovered/Not Resolved]
  - Anxiety [Unknown]

NARRATIVE: CASE EVENT DATE: 2014
